FAERS Safety Report 9210559 (Version 1)
Quarter: 2013Q2

REPORT INFORMATION
  Report Type: Spontaneous
  Country: US (occurrence: US)
  Receive Date: 20130404
  Receipt Date: 20130404
  Transmission Date: 20140414
  Serious: Yes (Other)
  Sender: FDA-Public Use
  Company Number: CHPA2013US005395

PATIENT
  Sex: Female

DRUGS (3)
  1. EXCEDRIN SINUS HEADACHE [Suspect]
     Indication: HEADACHE
     Dosage: 2 DF, UNK
     Route: 048
     Dates: start: 20130326
  2. EXCEDRIN SINUS HEADACHE [Suspect]
     Dosage: UNK, UNK
  3. TYLENOL [Suspect]
     Dosage: 2 DF, ONCE/SINGLE
     Route: 048
     Dates: start: 20130326

REACTIONS (4)
  - Kidney infection [Recovering/Resolving]
  - Tremor [Recovering/Resolving]
  - Feeling cold [Recovering/Resolving]
  - Skin warm [Recovering/Resolving]
